FAERS Safety Report 22540393 (Version 1)
Quarter: 2023Q2

REPORT INFORMATION
  Report Type: Spontaneous
  Country: DE (occurrence: None)
  Receive Date: 20230609
  Receipt Date: 20230609
  Transmission Date: 20230721
  Serious: Yes (Other)
  Sender: FDA-Public Use
  Company Number: DE-ROCHE-3363994

PATIENT
  Sex: Female

DRUGS (10)
  1. MABTHERA [Suspect]
     Active Substance: RITUXIMAB
     Indication: Diffuse large B-cell lymphoma
     Dosage: FIRST LINE WITH CHOP
     Route: 065
     Dates: start: 20220201, end: 20220601
  2. MABTHERA [Suspect]
     Active Substance: RITUXIMAB
     Dosage: SECOND LINE WITH GEMOX, FOUR CYCLES
     Route: 065
     Dates: start: 20220819, end: 20221001
  3. MABTHERA [Suspect]
     Active Substance: RITUXIMAB
     Dosage: THIRD LINE WITH POLATUZUMAB AND BENDAMSUTINE, ONE CYCLE
     Route: 065
     Dates: start: 20221117, end: 20221119
  4. POLATUZUMAB VEDOTIN [Suspect]
     Active Substance: POLATUZUMAB VEDOTIN
     Indication: Diffuse large B-cell lymphoma
     Dosage: THIRD LINE WITH RITUXIMAB AND BENDAMUSTINE, ONE CYCLE
     Route: 065
     Dates: start: 20221117, end: 20221119
  5. CYCLOPHOSPHAMIDE\DOXORUBICIN\PREDNISONE\VINCRISTINE [Suspect]
     Active Substance: CYCLOPHOSPHAMIDE\DOXORUBICIN\PREDNISONE\VINCRISTINE
     Indication: Diffuse large B-cell lymphoma
     Dosage: FIRST LINE WITH RITUXIMAB
     Route: 065
     Dates: start: 20220201, end: 20220601
  6. GEMCITABINE HYDROCHLORIDE\OXALIPLATIN [Suspect]
     Active Substance: GEMCITABINE HYDROCHLORIDE\OXALIPLATIN
     Indication: Diffuse large B-cell lymphoma
     Dosage: SECOND LINE WITH RITUXIMAB, FOUR CYCLES
     Route: 065
     Dates: start: 20220819, end: 20221001
  7. BENDAMUSTINE [Suspect]
     Active Substance: BENDAMUSTINE
     Indication: Diffuse large B-cell lymphoma
     Dosage: THIRD LINE WITH RITUXIMAB AND POLATUZUMAB, ONE CYCLES
     Route: 065
     Dates: start: 20221117, end: 20221119
  8. GENETICALLY-MODIFIED AUTOLOGOUS T CELLS NOS [Suspect]
     Active Substance: GENETICALLY-MODIFIED AUTOLOGOUS T CELLS NOS
     Indication: Diffuse large B-cell lymphoma
     Dosage: FOURTH LINE
     Route: 065
     Dates: start: 20221219, end: 20221219
  9. TAFASITAMAB-CXIX [Suspect]
     Active Substance: TAFASITAMAB-CXIX
     Indication: Diffuse large B-cell lymphoma
     Dosage: FIFTH LINE WITH LENALIDOMIDE
     Route: 065
     Dates: start: 20230301, end: 20230501
  10. LENALIDOMIDE [Suspect]
     Active Substance: LENALIDOMIDE
     Indication: Diffuse large B-cell lymphoma
     Dosage: FIFTH LINE WITH TAFASITAMAB
     Route: 065
     Dates: start: 20230301, end: 20230501

REACTIONS (4)
  - Lymphoma [Not Recovered/Not Resolved]
  - Pyrexia [Unknown]
  - Neutropenia [Unknown]
  - Atrial fibrillation [Unknown]
